FAERS Safety Report 13478914 (Version 1)
Quarter: 2017Q2

REPORT INFORMATION
  Report Type: Spontaneous
  Country: FR (occurrence: FR)
  Receive Date: 20170425
  Receipt Date: 20170425
  Transmission Date: 20170830
  Serious: Yes (Other)
  Sender: FDA-Public Use
  Company Number: FR-TEVA-761001ROM

PATIENT
  Sex: Male

DRUGS (8)
  1. NAVELBINE [Suspect]
     Active Substance: VINORELBINE TARTRATE
     Indication: SARCOMA METASTATIC
     Dosage: MAINTENANCE CHEMOTHERAPY
     Dates: start: 20110610, end: 20120509
  2. VINCRISTINE TEVA [Suspect]
     Active Substance: VINCRISTINE
     Indication: SARCOMA METASTATIC
     Dosage: 1.2 MILLIGRAM DAILY;
     Route: 042
     Dates: start: 20100912, end: 20101229
  3. DOXORUBICIN [Concomitant]
     Active Substance: DOXORUBICIN
     Indication: SARCOMA METASTATIC
     Dosage: IVADO PROTOCOL
     Dates: start: 20100912
  4. AVASTIN [Suspect]
     Active Substance: BEVACIZUMAB
     Indication: SARCOMA METASTATIC
     Route: 042
     Dates: start: 201009, end: 20120920
  5. ENDOXAN [Concomitant]
     Active Substance: CYCLOPHOSPHAMIDE
     Indication: SARCOMA METASTATIC
     Dosage: MAINTENANCE CHEMOTHERAPY
     Route: 048
     Dates: start: 20110610, end: 20120509
  6. IFOSFAMIDE. [Concomitant]
     Active Substance: IFOSFAMIDE
     Indication: SARCOMA METASTATIC
     Dosage: IVADO PROTOCOL
     Dates: start: 20100912
  7. DEXRAZOXANE. [Concomitant]
     Active Substance: DEXRAZOXANE
     Indication: SARCOMA METASTATIC
     Dosage: IVADO PROTOCOL
     Dates: start: 20100912
  8. DACTINOMYCIN [Concomitant]
     Active Substance: DACTINOMYCIN
     Indication: SARCOMA METASTATIC
     Dosage: IVADO PROTOCOL
     Dates: start: 20100912

REACTIONS (1)
  - Axonal neuropathy [Unknown]

NARRATIVE: CASE EVENT DATE: 2011
